FAERS Safety Report 20470400 (Version 1)
Quarter: 2022Q1

REPORT INFORMATION
  Report Type: Spontaneous
  Country: US (occurrence: None)
  Receive Date: 20220212
  Receipt Date: 20220212
  Transmission Date: 20220423
  Serious: Yes (Hospitalization)
  Sender: FDA-Public Use
  Company Number: None

PATIENT
  Sex: Male
  Weight: 148 kg

DRUGS (7)
  1. FILGRASTIM [Suspect]
     Active Substance: FILGRASTIM
     Dates: end: 20200423
  2. IFOSFAMIDE [Suspect]
     Active Substance: IFOSFAMIDE
     Dates: end: 20200415
  3. TAXOL [Suspect]
     Active Substance: PACLITAXEL
     Dates: end: 20200413
  4. AMLODIPINE BESYLATE [Concomitant]
     Active Substance: AMLODIPINE BESYLATE
  5. CARVEDILOL [Concomitant]
     Active Substance: CARVEDILOL
  6. HYDROCHLOROTHIAIZDE [Concomitant]
  7. RAMIPRIL [Concomitant]
     Active Substance: RAMIPRIL

REACTIONS (6)
  - Respiratory failure [None]
  - Hypoxia [None]
  - Capillary leak syndrome [None]
  - Pulmonary oedema [None]
  - Rales [None]
  - Haemoglobin decreased [None]

NARRATIVE: CASE EVENT DATE: 20200423
